FAERS Safety Report 17768474 (Version 1)
Quarter: 2020Q2

REPORT INFORMATION
  Report Type: Spontaneous
  Country: FR (occurrence: FR)
  Receive Date: 20200511
  Receipt Date: 20200511
  Transmission Date: 20200714
  Serious: Yes (Death)
  Sender: FDA-Public Use
  Company Number: FR-CANTON LABORATORIES, LLC-2083692

PATIENT
  Age: 86 Year
  Sex: Female

DRUGS (7)
  1. REQUIP [Concomitant]
     Active Substance: ROPINIROLE HYDROCHLORIDE
     Route: 065
  2. NAPROSYN [Suspect]
     Active Substance: NAPROXEN
     Indication: ARTHRALGIA
     Route: 048
     Dates: end: 20200321
  3. KARDEGIC [Concomitant]
     Active Substance: ASPIRIN DL-LYSINE
     Route: 065
  4. PERINDOPRIL [Suspect]
     Active Substance: PERINDOPRIL
     Route: 048
  5. ATORVASTATIN [Concomitant]
     Active Substance: ATORVASTATIN
     Route: 065
  6. LEVOTHYROX [Concomitant]
     Active Substance: LEVOTHYROXINE
     Route: 065
  7. PANTOPRAZOLE [Concomitant]
     Active Substance: PANTOPRAZOLE
     Route: 065

REACTIONS (2)
  - Acute respiratory distress syndrome [Fatal]
  - Coronavirus infection [Fatal]

NARRATIVE: CASE EVENT DATE: 20200321
